FAERS Safety Report 23108791 (Version 1)
Quarter: 2023Q4

REPORT INFORMATION
  Report Type: Other
  Country: US (occurrence: None)
  Receive Date: 20231026
  Receipt Date: 20231026
  Transmission Date: 20240110
  Serious: Yes (Death, Other)
  Sender: FDA-Public Use
  Company Number: US-ROCHE-3444946

PATIENT

DRUGS (7)
  1. RITUXIMAB [Suspect]
     Active Substance: RITUXIMAB
     Indication: Central nervous system lymphoma
     Route: 065
  2. IBRUTINIB [Suspect]
     Active Substance: IBRUTINIB
     Indication: Central nervous system lymphoma
     Route: 065
  3. ISAVUCONAZOLE [Suspect]
     Active Substance: ISAVUCONAZOLE
     Indication: Central nervous system lymphoma
     Route: 065
  4. TEMOZOLOMIDE [Suspect]
     Active Substance: TEMOZOLOMIDE
     Indication: Central nervous system lymphoma
     Route: 065
  5. ETOPOSIDE [Suspect]
     Active Substance: ETOPOSIDE
     Indication: Central nervous system lymphoma
     Route: 065
  6. DOXORUBICIN HYDROCHLORIDE [Suspect]
     Active Substance: DOXORUBICIN HYDROCHLORIDE
     Indication: Central nervous system lymphoma
     Route: 065
  7. DEXAMETHASONE [Suspect]
     Active Substance: DEXAMETHASONE
     Indication: Central nervous system lymphoma
     Route: 065

REACTIONS (13)
  - Death [Fatal]
  - Febrile neutropenia [Unknown]
  - Neutropenia [Unknown]
  - Thrombocytopenia [Unknown]
  - Anaemia [Unknown]
  - Urinary tract infection [Unknown]
  - Hypokalaemia [Unknown]
  - Sepsis [Unknown]
  - Diarrhoea [Unknown]
  - Hypotension [Unknown]
  - Adrenal insufficiency [Unknown]
  - Palmar-plantar erythrodysaesthesia syndrome [Unknown]
  - Atrial fibrillation [Unknown]
